FAERS Safety Report 7859569-7 (Version None)
Quarter: 2011Q4

REPORT INFORMATION
  Report Type: 
  Country: None (occurrence: None)
  Receive Date: 20111025
  Receipt Date: 20110909
  Transmission Date: 20120403
  Serious: Yes (Other)
  Sender: FDA-Public Use
  Company Number: 2011MA013501

PATIENT
  Age: 21 Year
  Sex: Female

DRUGS (1)
  1. SERTRALINE HYDROCHLORIDE [Suspect]
     Indication: DEPRESSED MOOD
     Dosage: 100 MG

REACTIONS (3)
  - ANXIETY [None]
  - HALLUCINATIONS, MIXED [None]
  - FEAR [None]
